FAERS Safety Report 6116196-X (Version None)
Quarter: 2009Q1

REPORT INFORMATION
  Report Type: 
  Country: None (occurrence: None)
  Receive Date: 20090314
  Receipt Date: 20081203
  Transmission Date: 20090719
  Serious: No
  Sender: FDA-Public Use
  Company Number: US-ABBOTT-08P-163-0490709-00

PATIENT
  Sex: Female
  Weight: 89.438 kg

DRUGS (2)
  1. HUMIRA [Suspect]
     Indication: PSORIASIS
     Dates: start: 20080601
  2. CELECOXIB [Concomitant]
     Indication: ARTHRITIS
     Dates: start: 20081104

REACTIONS (5)
  - COUGH [None]
  - EAR PAIN [None]
  - PYREXIA [None]
  - RESPIRATORY TRACT INFECTION [None]
  - RHINORRHOEA [None]
